FAERS Safety Report 7444553-8 (Version None)
Quarter: 2011Q2

REPORT INFORMATION
  Report Type: 
  Country: None (occurrence: None)
  Receive Date: 20110423
  Receipt Date: 20110423
  Transmission Date: 20111010
  Serious: Yes (Hospitalization)
  Sender: FDA-Public Use
  Company Number: None

PATIENT
  Age: 16 Year
  Sex: Female
  Weight: 58.9676 kg

DRUGS (8)
  1. ALOE VERA JUICE [Concomitant]
  2. SULFASALAZINE [Concomitant]
  3. NATURAL MEDICATIONS [Concomitant]
  4. LOMOTIL [Concomitant]
  5. PREDNISONE TAB [Concomitant]
  6. BELLADONNA [Concomitant]
  7. RECTAL MEDICATION SUPPOSITORIES [Concomitant]
  8. ACCUTANE [Suspect]

REACTIONS (2)
  - COLITIS ULCERATIVE [None]
  - CROHN'S DISEASE [None]
